FAERS Safety Report 23338091 (Version 1)
Quarter: 2023Q4

REPORT INFORMATION
  Report Type: Spontaneous
  Country: JP (occurrence: JP)
  Receive Date: 20231226
  Receipt Date: 20231226
  Transmission Date: 20240109
  Serious: Yes (Hospitalization)
  Sender: FDA-Public Use
  Company Number: JP-BAYER-2023A180073

PATIENT
  Age: 74 Year
  Sex: Female
  Weight: 46.3 kg

DRUGS (14)
  1. KERENDIA [Suspect]
     Active Substance: FINERENONE
     Indication: Chronic kidney disease
     Dosage: 1 DF, QD
     Route: 048
     Dates: end: 20231017
  2. SPIRONOLACTONE [Suspect]
     Active Substance: SPIRONOLACTONE
     Indication: Cardiac failure
     Dosage: 1 DF, QD
     Route: 048
     Dates: end: 20231017
  3. ENALAPRIL [Suspect]
     Active Substance: ENALAPRIL
     Indication: Hypertension
     Dosage: 1 DF, QD
     Route: 048
     Dates: end: 20231017
  4. ASPIRIN [Concomitant]
     Active Substance: ASPIRIN
  5. TOLVAPTAN [Concomitant]
     Active Substance: TOLVAPTAN
  6. AZOSEMIDE [Concomitant]
     Active Substance: AZOSEMIDE
  7. BISOPROLOL [Concomitant]
     Active Substance: BISOPROLOL\BISOPROLOL FUMARATE
  8. DAPAGLIFLOZIN [Concomitant]
     Active Substance: DAPAGLIFLOZIN
  9. LINAGLIPTIN [Concomitant]
     Active Substance: LINAGLIPTIN
  10. METFORMIN [Concomitant]
     Active Substance: METFORMIN HYDROCHLORIDE
  11. SODIUM FERROUS CITRATE [Concomitant]
     Active Substance: SODIUM FERROUS CITRATE
  12. LANSOPRAZOLE [Concomitant]
     Active Substance: LANSOPRAZOLE
  13. LANTUS [Concomitant]
     Active Substance: INSULIN GLARGINE
  14. INSULIN GLARGINE [Concomitant]
     Active Substance: INSULIN GLARGINE

REACTIONS (2)
  - Hyperkalaemia [Recovering/Resolving]
  - Bradycardia [Recovering/Resolving]

NARRATIVE: CASE EVENT DATE: 20231017
